FAERS Safety Report 13779623 (Version 2)
Quarter: 2017Q4

REPORT INFORMATION
  Report Type: Report from Study
  Country: DE (occurrence: DE)
  Receive Date: 20170721
  Receipt Date: 20171122
  Transmission Date: 20180320
  Serious: Yes (Hospitalization)
  Sender: FDA-Public Use
  Company Number: DE-ROCHE-1865915

PATIENT
  Age: 66 Year
  Sex: Male
  Weight: 124 kg

DRUGS (22)
  1. BEVACIZUMAB. [Suspect]
     Active Substance: BEVACIZUMAB
     Route: 042
     Dates: start: 20170424
  2. 5-FLUOROURACIL [Concomitant]
     Active Substance: FLUOROURACIL
     Dosage: DOSE:1350-2060 MG
     Route: 041
     Dates: start: 20160425, end: 20161207
  3. FOLINIC ACID [Concomitant]
     Active Substance: LEUCOVORIN
     Indication: COLORECTAL CANCER
     Dosage: DOSE: 220-340 MG
     Route: 042
     Dates: start: 20160425, end: 20161206
  4. ASPIRIN. [Concomitant]
     Active Substance: ASPIRIN
     Indication: IMPLANTABLE DEFIBRILLATOR INSERTION
     Route: 048
  5. XELODA [Suspect]
     Active Substance: CAPECITABINE
     Indication: COLORECTAL CANCER
     Dosage: DOS: 2600-3600 MG
     Route: 048
     Dates: start: 20170103, end: 20170507
  6. BELOC ZOK [Concomitant]
     Active Substance: METOPROLOL SUCCINATE
     Indication: HYPERTENSION
     Route: 048
  7. EBRANTIL [Concomitant]
     Active Substance: URAPIDIL
     Indication: HYPERTENSION
     Route: 048
  8. KEVATRIL [Concomitant]
     Active Substance: GRANISETRON HYDROCHLORIDE
     Indication: PROPHYLAXIS OF NAUSEA AND VOMITING
     Route: 042
     Dates: start: 20160425, end: 20161205
  9. BEVACIZUMAB. [Suspect]
     Active Substance: BEVACIZUMAB
     Indication: COLORECTAL CANCER METASTATIC
     Dosage: LAST DOSE OF AVASTIN PRIOR TO THE EVENT ON 20/JUN/2016.
     Route: 042
     Dates: start: 20160425
  10. 5-FLUOROURACIL [Concomitant]
     Active Substance: FLUOROURACIL
     Route: 041
     Dates: start: 20160425, end: 20160427
  11. 5-FLUOROURACIL [Concomitant]
     Active Substance: FLUOROURACIL
     Route: 040
     Dates: start: 20160620, end: 20160621
  12. IRINOTECAN [Concomitant]
     Active Substance: IRINOTECAN
     Indication: COLORECTAL CANCER
     Dosage: 200-310 MG
     Route: 042
     Dates: start: 20160425, end: 20161205
  13. IRINOTECAN [Concomitant]
     Active Substance: IRINOTECAN
     Route: 042
     Dates: start: 20160620, end: 20160620
  14. ESIDRIX [Concomitant]
     Active Substance: HYDROCHLOROTHIAZIDE
     Indication: HYPERTENSION
     Route: 048
  15. LOPERAMID [Concomitant]
     Active Substance: LOPERAMIDE
     Indication: DIARRHOEA
     Dosage: AS REQUIRED
     Route: 048
     Dates: start: 201611, end: 20170123
  16. DEXAMETHASONE. [Concomitant]
     Active Substance: DEXAMETHASONE
     Indication: PROPHYLAXIS OF NAUSEA AND VOMITING
     Route: 042
     Dates: start: 20160425, end: 20161205
  17. 5-FLUOROURACIL [Concomitant]
     Active Substance: FLUOROURACIL
     Indication: COLORECTAL CANCER
     Route: 040
     Dates: start: 20160425, end: 20160426
  18. 5-FLUOROURACIL [Concomitant]
     Active Substance: FLUOROURACIL
     Dosage: DOSE:450-690 MG
     Route: 041
     Dates: start: 20160425, end: 20161206
  19. DIOVAN [Concomitant]
     Active Substance: VALSARTAN
     Indication: HYPERTENSION
     Route: 048
  20. 5-FLUOROURACIL [Concomitant]
     Active Substance: FLUOROURACIL
     Route: 041
     Dates: start: 20160620, end: 20160622
  21. AMLODIPIN [Concomitant]
     Active Substance: AMLODIPINE BESYLATE
     Indication: HYPERTENSION
     Route: 048
  22. FOLINIC ACID [Concomitant]
     Active Substance: LEUCOVORIN
     Route: 042
     Dates: start: 20160620, end: 20160621

REACTIONS (2)
  - Incisional hernia [Recovered/Resolved]
  - Proteinuria [Not Recovered/Not Resolved]

NARRATIVE: CASE EVENT DATE: 20160620
